FAERS Safety Report 24749873 (Version 5)
Quarter: 2025Q3

REPORT INFORMATION
  Report Type: Spontaneous
  Country: US (occurrence: US)
  Receive Date: 20241218
  Receipt Date: 20250917
  Transmission Date: 20251020
  Serious: No
  Sender: BRISTOL-MYERS SQUIBB COMPANY
  Company Number: US-BRISTOL-MYERS SQUIBB COMPANY-2024-195603

PATIENT
  Age: 74 Year
  Sex: Female

DRUGS (4)
  1. ORENCIA [Suspect]
     Active Substance: ABATACEPT
     Indication: Rheumatoid arthritis
     Dates: start: 202411
  2. ORENCIA [Suspect]
     Active Substance: ABATACEPT
     Dates: start: 202411
  3. ORENCIA [Suspect]
     Active Substance: ABATACEPT
     Dates: start: 202411
  4. ORENCIA [Suspect]
     Active Substance: ABATACEPT
     Dates: start: 202411

REACTIONS (10)
  - Joint swelling [Unknown]
  - Arthralgia [Unknown]
  - Muscle spasms [Recovering/Resolving]
  - Nasopharyngitis [Unknown]
  - Productive cough [Unknown]
  - Cough [Recovering/Resolving]
  - Micturition urgency [Unknown]
  - Back pain [Unknown]
  - Urinary tract infection [Unknown]
  - Loss of therapeutic response [Unknown]

NARRATIVE: CASE EVENT DATE: 20241101
